FAERS Safety Report 15822163 (Version 1)
Quarter: 2019Q1

REPORT INFORMATION
  Report Type: Spontaneous
  Country: US (occurrence: US)
  Receive Date: 20190114
  Receipt Date: 20190114
  Transmission Date: 20190417
  Serious: Yes (Hospitalization)
  Sender: FDA-Public Use
  Company Number: None

PATIENT
  Sex: Female

DRUGS (24)
  1. SMZ/TMP [Concomitant]
     Active Substance: SULFAMETHOXAZOLE\TRIMETHOPRIM
  2. DIAZEPAM. [Concomitant]
     Active Substance: DIAZEPAM
  3. FEXOFENADRINE [Concomitant]
  4. FLUOXETINE [Concomitant]
     Active Substance: FLUOXETINE HYDROCHLORIDE
  5. MIRTAZAPINE. [Concomitant]
     Active Substance: MIRTAZAPINE
  6. CYMBALTA [Concomitant]
     Active Substance: DULOXETINE HYDROCHLORIDE
  7. NUVIGIL [Concomitant]
     Active Substance: ARMODAFINIL
  8. SINGULAIR [Concomitant]
     Active Substance: MONTELUKAST SODIUM
  9. PROVIGIL [Concomitant]
     Active Substance: MODAFINIL
  10. ADVAIR HFA [Concomitant]
     Active Substance: FLUTICASONE PROPIONATE\SALMETEROL XINAFOATE
  11. ALBUTEROL. [Concomitant]
     Active Substance: ALBUTEROL
  12. ALPRAZOLAM. [Concomitant]
     Active Substance: ALPRAZOLAM
  13. ONDANSETRON [Concomitant]
     Active Substance: ONDANSETRON
  14. AZITHROMYCIN ANHYDROUS. [Concomitant]
     Active Substance: AZITHROMYCIN ANHYDROUS
  15. MYRBETRIQ [Concomitant]
     Active Substance: MIRABEGRON
  16. OMEPRAZOLE. [Concomitant]
     Active Substance: OMEPRAZOLE
  17. GLATOPA [Suspect]
     Active Substance: GLATIRAMER ACETATE
     Indication: MULTIPLE SCLEROSIS
     Route: 058
     Dates: start: 20180208
  18. PREDNISONE. [Concomitant]
     Active Substance: PREDNISONE
  19. ABILIFY [Concomitant]
     Active Substance: ARIPIPRAZOLE
  20. CLONAZEPAM. [Concomitant]
     Active Substance: CLONAZEPAM
  21. FLUTICASONE. [Concomitant]
     Active Substance: FLUTICASONE
  22. SERTRALINE [Concomitant]
     Active Substance: SERTRALINE HYDROCHLORIDE
  23. VENLAFAXINE [Concomitant]
     Active Substance: VENLAFAXINE HYDROCHLORIDE
  24. TIZANIDINE. [Concomitant]
     Active Substance: TIZANIDINE

REACTIONS (1)
  - Multiple sclerosis relapse [None]
